FAERS Safety Report 6580451-X (Version None)
Quarter: 2010Q1

REPORT INFORMATION
  Report Type: 
  Country: None (occurrence: None)
  Receive Date: 20100203
  Receipt Date: 20100119
  Transmission Date: 20100710
  Serious: Yes (Other)
  Sender: FDA-Public Use
  Company Number: 2010S1000448

PATIENT
  Age: 53 Year
  Sex: Female

DRUGS (10)
  1. PHOSPHOSODA FLAVOR NOT SPECIFIED [Suspect]
     Indication: COLONOSCOPY
     Dosage: 90 ML; TOTAL; PO
     Route: 048
     Dates: start: 20080520
  2. MAGNESIUM CITRATE [Suspect]
     Indication: COLONOSCOPY
     Dates: start: 20080520
  3. SIMVASTATIN [Concomitant]
  4. TOPAMAX [Concomitant]
  5. AMILORIDE HCL AND HYDROCHLOROTHIAZIDE [Concomitant]
  6. ATACAND [Concomitant]
  7. LEXAPRO [Concomitant]
  8. PREDNISONE [Concomitant]
  9. ACYCLOVIR [Concomitant]
  10. NEXIUM [Concomitant]

REACTIONS (1)
  - RENAL DISORDER [None]
